FAERS Safety Report 6969416-3 (Version None)
Quarter: 2010Q3

REPORT INFORMATION
  Report Type: 
  Country: None (occurrence: None)
  Receive Date: 20100902
  Receipt Date: 20100817
  Transmission Date: 20110219
  Serious: Yes (Life-Threatening, Other)
  Sender: FDA-Public Use
  Company Number: FKO201000338

PATIENT
  Age: 72 Year
  Sex: Female

DRUGS (2)
  1. METHOTREXATE [Suspect]
     Indication: RHEUMATOID ARTHRITIS
     Dosage: (4 MG, 4 MG/WEEK)
  2. PREDNISOLONE [Concomitant]

REACTIONS (9)
  - ASYMPTOMATIC BACTERIURIA [None]
  - DIABETES MELLITUS [None]
  - DIARRHOEA [None]
  - DISSEMINATED INTRAVASCULAR COAGULATION [None]
  - EMPHYSEMATOUS PYELONEPHRITIS [None]
  - ENTEROCOLITIS [None]
  - HAEMODIALYSIS [None]
  - HYPOTENSION [None]
  - SHOCK [None]
